FAERS Safety Report 5116140-8 (Version None)
Quarter: 2006Q3

REPORT INFORMATION
  Report Type: 
  Country: None (occurrence: None)
  Receive Date: 20060927
  Receipt Date: 20060612
  Transmission Date: 20061208
  Serious: No
  Sender: FDA-Public Use
  Company Number: US-BRISTOL-MYERS SQUIBB COMPANY-13409719

PATIENT
  Age: 55 Year
  Sex: Female

DRUGS (1)
  1. PERFLUTREN [Suspect]
     Indication: CORONARY ARTERY DISEASE
     Route: 040
     Dates: start: 20060612, end: 20060612

REACTIONS (4)
  - HEADACHE [None]
  - MUSCULOSKELETAL PAIN [None]
  - NECK PAIN [None]
  - PAIN [None]
